FAERS Safety Report 17521568 (Version 1)
Quarter: 2020Q1

REPORT INFORMATION
  Report Type: Spontaneous
  Country: GB (occurrence: GB)
  Receive Date: 20200310
  Receipt Date: 20200310
  Transmission Date: 20200409
  Serious: Yes (Congenital Anomaly, Other)
  Sender: FDA-Public Use
  Company Number: GB-MYLANLABS-2020M1024540

PATIENT
  Sex: Male

DRUGS (2)
  1. METHADONE [Suspect]
     Active Substance: METHADONE HYDROCHLORIDE
     Indication: PRODUCT USED FOR UNKNOWN INDICATION
     Dosage: UNK
     Route: 064
  2. HEROIN [Suspect]
     Active Substance: DIAMORPHINE
     Indication: PRODUCT USED FOR UNKNOWN INDICATION
     Dosage: UNK
     Route: 064

REACTIONS (21)
  - Congenital nose malformation [Unknown]
  - Foetal chromosome abnormality [Unknown]
  - Speech disorder developmental [Unknown]
  - Motor developmental delay [Unknown]
  - Gastrooesophageal reflux disease [Unknown]
  - Hypermetropia [Unknown]
  - Normocytic anaemia [Unknown]
  - Constipation neonatal [Unknown]
  - Foetal exposure during pregnancy [Recovered/Resolved]
  - Renal hypoplasia [Unknown]
  - Developmental delay [Unknown]
  - Delayed visual maturation [Unknown]
  - Dysmorphism [Unknown]
  - Body height below normal [Unknown]
  - Hypothyroidism [Unknown]
  - Hypotonia neonatal [Unknown]
  - Gene mutation [Unknown]
  - Blood creatine phosphokinase increased [Unknown]
  - Generalised resistance to thyroid hormone [Unknown]
  - Thyroxine decreased [Unknown]
  - Tri-iodothyronine increased [Unknown]
